FAERS Safety Report 5701853-7 (Version None)
Quarter: 2008Q2

REPORT INFORMATION
  Report Type: 
  Country: None (occurrence: None)
  Receive Date: 20080411
  Receipt Date: 20080403
  Transmission Date: 20081010
  Serious: Yes (Other)
  Sender: FDA-Public Use
  Company Number: US-BRISTOL-MYERS SQUIBB COMPANY-14113518

PATIENT
  Age: 80 Year
  Sex: Female

DRUGS (1)
  1. TEQUIN [Suspect]
     Indication: INFECTION
     Route: 048
     Dates: start: 20060227

REACTIONS (1)
  - TYPE 2 DIABETES MELLITUS [None]
